FAERS Safety Report 20216693 (Version 7)
Quarter: 2022Q2

REPORT INFORMATION
  Report Type: Report from Study
  Country: US (occurrence: US)
  Receive Date: 20211222
  Receipt Date: 20220405
  Transmission Date: 20220721
  Serious: Yes (Death, Life-Threatening, Other)
  Sender: FDA-Public Use
  Company Number: US-NOVARTISPH-NVSC2021US293240

PATIENT
  Age: 69 Year
  Sex: Male
  Weight: 78.6 kg

DRUGS (31)
  1. NEORAL [Suspect]
     Active Substance: CYCLOSPORINE
     Indication: COVID-19
     Dosage: 200 MG, QD
     Route: 048
     Dates: start: 20211207, end: 20211207
  2. REMDESIVIR [Suspect]
     Active Substance: REMDESIVIR
     Indication: COVID-19
     Dosage: 200 MG, ONCE
     Route: 042
     Dates: start: 20211204, end: 20211207
  3. NEXTERONE [Concomitant]
     Active Substance: AMIODARONE HYDROCHLORIDE
     Indication: Product used for unknown indication
     Dosage: 150 MG/100ML, UNK
     Route: 042
     Dates: start: 20211216
  4. BARICITINIB [Concomitant]
     Active Substance: BARICITINIB
     Indication: COVID-19
     Dosage: 4 MG, UNK
     Route: 048
     Dates: start: 20211204
  5. BARICITINIB [Concomitant]
     Active Substance: BARICITINIB
     Dosage: 2 MG, QD
     Route: 048
     Dates: start: 20211206
  6. LOZENGER T [Concomitant]
     Indication: Oropharyngeal pain
     Dosage: UNK
     Route: 065
     Dates: start: 20211206
  7. GLUTOSE [Concomitant]
     Active Substance: DEXTROSE
     Indication: COVID-19
     Dosage: 15 G, UNK
     Route: 065
     Dates: start: 20211204
  8. DEXAMETHASONE [Concomitant]
     Active Substance: DEXAMETHASONE
     Indication: COVID-19
     Dosage: 6 MG, UNK
     Route: 065
     Dates: start: 20211204
  9. LOVENOX [Concomitant]
     Active Substance: ENOXAPARIN SODIUM
     Indication: COVID-19
     Dosage: 40 MG, UNK
     Route: 065
     Dates: start: 20211204
  10. PROTONIX [Concomitant]
     Active Substance: PANTOPRAZOLE SODIUM
     Indication: Gastrooesophageal reflux disease
     Dosage: 40 MG, QD
     Route: 048
     Dates: start: 20110830
  11. PROTONIX [Concomitant]
     Active Substance: PANTOPRAZOLE SODIUM
     Dosage: 40 MG, QD
     Route: 065
     Dates: start: 20211204
  12. DECADRON [Concomitant]
     Active Substance: DEXAMETHASONE
     Indication: Product used for unknown indication
     Dosage: 6 MG, QD
     Route: 048
     Dates: start: 20211204
  13. MYCAMINE [Concomitant]
     Active Substance: MICAFUNGIN SODIUM
     Indication: Product used for unknown indication
     Dosage: 100 MG
     Route: 042
     Dates: start: 20211215
  14. INSULIN NOS [Concomitant]
     Active Substance: INSULIN NOS
     Indication: Type 2 diabetes mellitus
     Dosage: 3-8 UNITS, Q3H
     Route: 065
     Dates: start: 20211204
  15. PROVENTIL [Concomitant]
     Active Substance: ALBUTEROL
     Indication: COVID-19
     Dosage: 2.5 MG/0.5ML, NEBULIZER.
     Route: 065
     Dates: start: 20211204
  16. PROVENTIL [Concomitant]
     Active Substance: ALBUTEROL
     Indication: Dyspnoea
     Dosage: 2.5 MG, Q4H (NEBULIZER)
     Route: 065
     Dates: start: 20211205
  17. APRESOLINE HYDROCHLORIDE [Concomitant]
     Active Substance: HYDRALAZINE HYDROCHLORIDE
     Indication: Product used for unknown indication
     Dosage: 10 MG, Q4H
     Route: 065
     Dates: start: 20211208
  18. LABETALOL [Concomitant]
     Active Substance: LABETALOL\LABETALOL HYDROCHLORIDE
     Indication: Blood pressure increased
     Dosage: 10 MG, Q3H
     Route: 065
     Dates: start: 20211208
  19. CISATRACURIUM [Concomitant]
     Active Substance: CISATRACURIUM
     Indication: Product used for unknown indication
     Dosage: 400 MG, CONT
     Route: 042
     Dates: start: 20211212
  20. SUBLIMAZE [Concomitant]
     Active Substance: FENTANYL CITRATE
     Indication: Product used for unknown indication
     Dosage: 100 MCG, Q1H
     Route: 065
     Dates: start: 20211212
  21. PORCINE-FASTACT [Concomitant]
     Indication: Product used for unknown indication
     Dosage: 25000 UNITS/250 ML CONTINUOUS
     Route: 042
     Dates: start: 20211204
  22. MIDAZOLAM [Concomitant]
     Active Substance: MIDAZOLAM
     Indication: Product used for unknown indication
     Dosage: 1MG/ML, CONTINUOUS
     Route: 042
     Dates: start: 20211213
  23. NORFENEFRINE [Concomitant]
     Active Substance: NORFENEFRINE
     Indication: Product used for unknown indication
     Dosage: 16MG/250ML, CONTINUOUS
     Route: 042
     Dates: start: 20201210
  24. PHENYLEPHRINE [Concomitant]
     Active Substance: PHENYLEPHRINE HYDROCHLORIDE
     Indication: Product used for unknown indication
     Dosage: 50 MG, CONTINUOUS
     Route: 042
     Dates: start: 20211204
  25. MIRALAX [Concomitant]
     Active Substance: POLYETHYLENE GLYCOL 3350
     Indication: Product used for unknown indication
     Dosage: 3350 PACKET 17 G, QD, ORGOGASTRIC TUBE
     Route: 065
     Dates: start: 20211205
  26. DIPRIVAN [Concomitant]
     Active Substance: PROPOFOL
     Indication: Product used for unknown indication
     Dosage: 1000 MG/100 ML CONTINUOUS
     Route: 042
     Dates: start: 20211210
  27. VANCOCIN [Concomitant]
     Active Substance: VANCOMYCIN HYDROCHLORIDE
     Indication: Product used for unknown indication
     Dosage: 500 MG, BID
     Route: 042
     Dates: start: 20211213
  28. VASOPRESSIN [Concomitant]
     Active Substance: VASOPRESSIN
     Indication: Product used for unknown indication
     Dosage: 60 UNITS, D5WW 100 ML CONTINUOUS
     Route: 042
     Dates: start: 20211213
  29. ZOSYN [Concomitant]
     Active Substance: PIPERACILLIN SODIUM\TAZOBACTAM SODIUM
     Indication: Product used for unknown indication
     Dosage: 3.375 G, TID
     Route: 042
     Dates: start: 20211213
  30. FENTANYL [Concomitant]
     Active Substance: FENTANYL
     Indication: Product used for unknown indication
     Dosage: 10 MCG/ML, CONTINUOUS
     Route: 042
     Dates: start: 20211212
  31. HUMULIN NOS [Concomitant]
     Active Substance: INSULIN HUMAN
     Indication: Product used for unknown indication
     Dosage: 4 UNITS, TID
     Route: 065
     Dates: start: 20211208

REACTIONS (4)
  - Hypersensitivity [Not Recovered/Not Resolved]
  - Multiple organ dysfunction syndrome [Not Recovered/Not Resolved]
  - Sepsis [Fatal]
  - Peripheral ischaemia [Recovering/Resolving]

NARRATIVE: CASE EVENT DATE: 20211207
